FAERS Safety Report 8502899 (Version 2)
Quarter: 2013Q2

REPORT INFORMATION
  Report Type: Spontaneous
  Country: US (occurrence: US)
  Receive Date: 20120411
  Receipt Date: 20130404
  Transmission Date: 20140414
  Serious: Yes (Other)
  Sender: FDA-Public Use
  Company Number: US-AMGEN-USASP2012022284

PATIENT
  Age: 70 Year
  Sex: Female

DRUGS (6)
  1. PROLIA [Suspect]
     Indication: OSTEOPOROSIS POSTMENOPAUSAL
     Dosage: 60 MG, Q6MO
     Dates: start: 201105
  2. METFORMIN [Concomitant]
     Dates: start: 2005
  3. SIMVASTATIN [Concomitant]
  4. LISINOPRIL [Concomitant]
     Indication: BLOOD PRESSURE
  5. LOSARTAN [Concomitant]
     Indication: BLOOD PRESSURE
  6. ZOLOFT [Concomitant]
     Dates: start: 2012

REACTIONS (2)
  - Pharyngeal oedema [Not Recovered/Not Resolved]
  - Throat irritation [Not Recovered/Not Resolved]
